FAERS Safety Report 11611043 (Version 1)
Quarter: 2015Q4

REPORT INFORMATION
  Report Type: Spontaneous
  Country: US (occurrence: US)
  Receive Date: 20151008
  Receipt Date: 20151008
  Transmission Date: 20160304
  Serious: No
  Sender: FDA-Public Use
  Company Number: US-PFIZER INC-2015334849

PATIENT
  Age: 72 Year
  Sex: Female

DRUGS (2)
  1. AROMASIN [Suspect]
     Active Substance: EXEMESTANE
     Indication: NEOPLASM MALIGNANT
     Dosage: UNK
     Dates: start: 201303, end: 201410
  2. AFINITOR [Suspect]
     Active Substance: EVEROLIMUS
     Indication: NEOPLASM MALIGNANT
     Dosage: UNK
     Dates: start: 201303, end: 201410

REACTIONS (3)
  - Toxicity to various agents [Unknown]
  - Disease progression [Unknown]
  - Neoplasm malignant [Unknown]
